FAERS Safety Report 11810257 (Version 1)
Quarter: 2015Q4

REPORT INFORMATION
  Report Type: Other
  Country: US (occurrence: US)
  Receive Date: 20151208
  Receipt Date: 20151208
  Transmission Date: 20160305
  Serious: Yes (Other)
  Sender: FDA-Public Use
  Company Number: US-MYLANLABS-2015M1043386

PATIENT

DRUGS (1)
  1. BUPROPION. [Suspect]
     Active Substance: BUPROPION
     Indication: SMOKING CESSATION THERAPY
     Dosage: 150MG ONCE A DAY DOSE OF FOR THREE DAYS AND THEN TWICE DAILY FOR THE REMAINDER OF THE STUDY.
     Route: 065

REACTIONS (1)
  - Hyponatraemia [Unknown]
